FAERS Safety Report 7872565-9 (Version None)
Quarter: 2011Q4

REPORT INFORMATION
  Report Type: 
  Country: None (occurrence: None)
  Receive Date: 20111030
  Receipt Date: 20110428
  Transmission Date: 20120403
  Serious: No
  Sender: FDA-Public Use
  Company Number: US-AMGEN-USASP2011022259

PATIENT
  Age: 68 Year
  Sex: Female

DRUGS (2)
  1. SULFASALAZINE [Concomitant]
     Dates: start: 20091001
  2. ENBREL [Suspect]
     Indication: PSORIASIS
     Dosage: 50 MG, 2 TIMES/WK
     Dates: start: 20110405

REACTIONS (1)
  - FREQUENT BOWEL MOVEMENTS [None]
